FAERS Safety Report 18808653 (Version 2)
Quarter: 2021Q1

REPORT INFORMATION
  Report Type: Spontaneous
  Country: US (occurrence: US)
  Receive Date: 20210129
  Receipt Date: 20210217
  Transmission Date: 20210419
  Serious: No
  Sender: FDA-Public Use
  Company Number: US-TRIS PHARMA, INC.-21US009251

PATIENT

DRUGS (3)
  1. HYDROCODONE + APAP [Suspect]
     Active Substance: ACETAMINOPHEN\HYDROCODONE BITARTRATE
     Indication: BACK PAIN
     Dosage: 1 DOSAGE FORM, Q 4?6 HR
     Route: 048
  2. VALSARTAN. [Concomitant]
     Active Substance: VALSARTAN
     Indication: HYPERTENSION
     Route: 065
  3. TRAMADOL. [Concomitant]
     Active Substance: TRAMADOL
     Indication: MUSCLE SPASMS
     Route: 065

REACTIONS (5)
  - Hypertension [Not Recovered/Not Resolved]
  - Muscle spasms [Recovered/Resolved]
  - Withdrawal syndrome [Recovered/Resolved]
  - Insomnia [Recovered/Resolved]
  - Product dose omission issue [Unknown]

NARRATIVE: CASE EVENT DATE: 202012
